FAERS Safety Report 5126187-3 (Version None)
Quarter: 2006Q3

REPORT INFORMATION
  Report Type: 
  Country: None (occurrence: None)
  Receive Date: 20060825
  Receipt Date: 20060428
  Transmission Date: 20061208
  Serious: Yes (Other)
  Sender: FDA-Public Use
  Company Number: HQWYE141503MAY06

PATIENT
  Age: 8 Year
  Sex: Female
  Weight: 31.78 kg

DRUGS (2)
  1. CHILDREN'S ADVIL [Suspect]
     Indication: PYREXIA
     Dosage: TWO TEASPOONS ONCE A DAY AND AS NEEDED, ORAL
     Route: 048
     Dates: start: 20060101
  2. UNSPECIFIED INSULIN (UNSPECIFIED INSULIN) [Concomitant]

REACTIONS (1)
  - BLOOD GLUCOSE INCREASED [None]
